FAERS Safety Report 7777476-5 (Version None)
Quarter: 2011Q3

REPORT INFORMATION
  Report Type: 
  Country: None (occurrence: None)
  Receive Date: 20110926
  Receipt Date: 20110915
  Transmission Date: 20111222
  Serious: Yes (Death)
  Sender: FDA-Public Use
  Company Number: AR-SANOFI-AVENTIS-2011SA043722

PATIENT
  Age: 81 Year
  Sex: Male
  Weight: 67 kg

DRUGS (4)
  1. DRONEDARONE HCL [Suspect]
     Indication: ATRIAL FIBRILLATION
     Route: 048
     Dates: start: 20110530, end: 20110606
  2. METFORMIN HCL [Concomitant]
     Route: 065
  3. FUROSEMIDE [Concomitant]
     Route: 065
  4. SIMVASTATIN [Concomitant]
     Route: 065

REACTIONS (1)
  - DEATH [None]
